FAERS Safety Report 7108930-7 (Version None)
Quarter: 2010Q4

REPORT INFORMATION
  Report Type: 
  Country: None (occurrence: None)
  Receive Date: 20101117
  Receipt Date: 20101105
  Transmission Date: 20110411
  Serious: No
  Sender: FDA-Public Use
  Company Number: US-B.I. PHARMACEUTICALS,INC./RIDGEFIELD-2010-BP-12452BP

PATIENT
  Age: 56 Year
  Sex: Female

DRUGS (2)
  1. MICARDIS HCT [Suspect]
     Indication: HYPERTENSION
     Route: 048
     Dates: start: 20101029, end: 20101101
  2. PAXIL [Concomitant]
     Indication: DEPRESSION

REACTIONS (3)
  - JOINT SWELLING [None]
  - LEUKOCYTOCLASTIC VASCULITIS [None]
  - PURPURA [None]
